FAERS Safety Report 9540249 (Version 1)
Quarter: 2013Q3

REPORT INFORMATION
  Report Type: Spontaneous
  Country: US (occurrence: US)
  Receive Date: 20130920
  Receipt Date: 20130920
  Transmission Date: 20140515
  Serious: Yes (Hospitalization)
  Sender: FDA-Public Use
  Company Number: US-TEVA-433832USA

PATIENT
  Sex: Female

DRUGS (13)
  1. PROAIR HFA [Suspect]
     Indication: ASTHMA
     Route: 055
  2. PROAIR HFA [Suspect]
     Indication: BRONCHITIS
  3. XOPENEX [Suspect]
     Indication: ASTHMA
  4. XOPENEX [Suspect]
     Indication: BRONCHITIS
  5. ASOPT [Concomitant]
     Dosage: 1 DROP
  6. LUMIGAN [Concomitant]
  7. NORVASC [Concomitant]
     Indication: HYPERTENSION
  8. DIOVAN [Concomitant]
     Indication: HYPERTENSION
  9. LUTEIN [Concomitant]
  10. CO-Q-10 [Concomitant]
  11. VITAMIN B12 [Concomitant]
  12. VITAMIN D [Concomitant]
  13. OXYGEN [Concomitant]

REACTIONS (8)
  - Asthma [Recovered/Resolved]
  - Vision blurred [Unknown]
  - Eye disorder [Unknown]
  - Dizziness [Unknown]
  - Memory impairment [Unknown]
  - Blood pressure increased [Unknown]
  - Headache [Unknown]
  - Chest discomfort [Unknown]
